FAERS Safety Report 9167151 (Version 2)
Quarter: 2013Q1

REPORT INFORMATION
  Report Type: Spontaneous
  Country: US (occurrence: US)
  Receive Date: 20130318
  Receipt Date: 20130327
  Transmission Date: 20140127
  Serious: No
  Sender: FDA-Public Use
  Company Number: US-BIOGENIDEC-2013BI023653

PATIENT
  Sex: Female

DRUGS (9)
  1. AVONEX [Suspect]
     Indication: MULTIPLE SCLEROSIS
     Route: 030
     Dates: start: 20060624
  2. AVONEX [Suspect]
     Indication: MULTIPLE SCLEROSIS
     Route: 030
  3. METOPROLOL SUCCINATE [Concomitant]
  4. SIMVASTATIN [Concomitant]
  5. PANTOPRAZOLE SODIUM [Concomitant]
  6. CIPRO [Concomitant]
  7. LUNESTA [Concomitant]
  8. METFORMIN HCL [Concomitant]
  9. GABAPENTIN [Concomitant]
     Route: 048

REACTIONS (1)
  - Tuberculin test positive [Unknown]
